FAERS Safety Report 9434246 (Version 5)
Quarter: 2013Q3

REPORT INFORMATION
  Report Type: Spontaneous
  Country: GB (occurrence: GB)
  Receive Date: 20130801
  Receipt Date: 20130917
  Transmission Date: 20140515
  Serious: No
  Sender: FDA-Public Use
  Company Number: PHFR2013GB004260

PATIENT
  Age: 37 Year
  Sex: Female

DRUGS (3)
  1. CLOZARIL [Suspect]
     Indication: SCHIZOPHRENIA
     Dosage: UNK
     Route: 048
     Dates: start: 20081130
  2. PROSTAP [Concomitant]
     Indication: ENDOMETRIOSIS
     Dosage: 2 DF
     Route: 030
     Dates: start: 20130613
  3. PROSTAP [Concomitant]
     Dosage: UNK UKN, UNK
     Route: 030
     Dates: start: 20130711, end: 20130724

REACTIONS (2)
  - Leukopenia [Recovering/Resolving]
  - White blood cell count decreased [Recovering/Resolving]
